FAERS Safety Report 8855441 (Version 1)
Quarter: 2012Q4

REPORT INFORMATION
  Report Type: 
  Country: US (occurrence: US)
  Receive Date: 20121023
  Receipt Date: 20121023
  Transmission Date: 20130627
  Serious: Yes (Other)
  Sender: FDA-Public Use
  Company Number: US-AMGEN-USASP2012049077

PATIENT
  Age: 77 Year
  Sex: Female

DRUGS (2)
  1. ENBREL [Suspect]
     Indication: RHEUMATOID ARTHRITIS
     Dosage: 50 mg, qwk
     Dates: start: 20120521, end: 20120919
  2. REMICADE [Concomitant]
     Dosage: UNK

REACTIONS (5)
  - Impaired healing [Not Recovered/Not Resolved]
  - Wound [Recovered/Resolved]
  - Ulcer [Not Recovered/Not Resolved]
  - Animal bite [Recovered/Resolved]
  - Blister [Not Recovered/Not Resolved]
